FAERS Safety Report 9723604 (Version 1)
Quarter: 2013Q4

REPORT INFORMATION
  Report Type: Report from Study
  Country: BR (occurrence: BR)
  Receive Date: 20131202
  Receipt Date: 20131202
  Transmission Date: 20140711
  Serious: Yes (Other)
  Sender: FDA-Public Use
  Company Number: PHHY2013BR139316

PATIENT
  Sex: Female
  Weight: 58 kg

DRUGS (2)
  1. FTY 720 [Suspect]
     Indication: MULTIPLE SCLEROSIS
     Dosage: 0.5 MG, QD
     Route: 048
  2. PYRIDOSTIGMINE [Concomitant]
     Indication: MYASTHENIA GRAVIS
     Dosage: 30 MG, UNK

REACTIONS (1)
  - Mediastinal mass [Unknown]
